FAERS Safety Report 22082418 (Version 5)
Quarter: 2023Q4

REPORT INFORMATION
  Report Type: Report from Study
  Country: US (occurrence: US)
  Receive Date: 20230310
  Receipt Date: 20231206
  Transmission Date: 20240110
  Serious: No
  Sender: FDA-Public Use
  Company Number: US-002147023-NVSC2023US050938

PATIENT
  Sex: Male
  Weight: 64.8 kg

DRUGS (2)
  1. KESIMPTA [Suspect]
     Active Substance: OFATUMUMAB
     Indication: Multiple sclerosis
     Dosage: 20 MG, QMO
     Route: 058
  2. KESIMPTA [Suspect]
     Active Substance: OFATUMUMAB
     Dosage: 20 MG, QMO, (0.4 ML(MILILITRE)
     Route: 030

REACTIONS (6)
  - Liquid product physical issue [Recovered/Resolved]
  - Product storage error [Recovered/Resolved]
  - Brain fog [Unknown]
  - Disturbance in attention [Unknown]
  - Ill-defined disorder [Unknown]
  - Product dose omission issue [Unknown]
